FAERS Safety Report 6233973-5 (Version None)
Quarter: 2009Q2

REPORT INFORMATION
  Report Type: 
  Country: None (occurrence: None)
  Receive Date: 20090618
  Receipt Date: 20090615
  Transmission Date: 20091009
  Serious: Yes (Hospitalization)
  Sender: FDA-Public Use
  Company Number: BR-BAYER-200917360LA

PATIENT
  Age: 44 Year
  Sex: Female

DRUGS (5)
  1. BETAFERON [Suspect]
     Indication: MULTIPLE SCLEROSIS
     Dosage: TOTAL DAILY DOSE: 8 MIU
     Route: 058
     Dates: start: 20080501
  2. BETAFERON [Suspect]
     Route: 058
     Dates: start: 20080101, end: 20080201
  3. FLUOXETINE HCL [Concomitant]
     Indication: DEPRESSION
     Route: 048
     Dates: start: 19980101
  4. SIBUTRAMINE [Concomitant]
     Indication: DEPRESSION
     Route: 048
     Dates: start: 20040101
  5. METHOTREXATE [Concomitant]
     Indication: MULTIPLE SCLEROSIS
     Route: 048
     Dates: start: 19990101

REACTIONS (4)
  - DYSURIA [None]
  - FALL [None]
  - SPEECH DISORDER [None]
  - WRIST FRACTURE [None]
